FAERS Safety Report 24667268 (Version 8)
Quarter: 2025Q1

REPORT INFORMATION
  Report Type: Spontaneous
  Country: CA (occurrence: CA)
  Receive Date: 20241126
  Receipt Date: 20250312
  Transmission Date: 20250409
  Serious: Yes (Hospitalization, Other)
  Sender: ASTELLAS
  Company Number: CA-PFIZER INC-PV202400124815

PATIENT
  Age: 47 Year
  Sex: Male
  Weight: 112 kg

DRUGS (13)
  1. PADCEV [Suspect]
     Active Substance: ENFORTUMAB VEDOTIN-EJFV
     Indication: Metastatic carcinoma of the bladder
     Route: 042
     Dates: start: 20240523
  2. PADCEV [Suspect]
     Active Substance: ENFORTUMAB VEDOTIN-EJFV
     Route: 042
     Dates: start: 20241010
  3. PADCEV [Suspect]
     Active Substance: ENFORTUMAB VEDOTIN-EJFV
     Route: 042
     Dates: start: 20241017
  4. PADCEV [Suspect]
     Active Substance: ENFORTUMAB VEDOTIN-EJFV
     Route: 042
     Dates: start: 20241031
  5. PADCEV [Suspect]
     Active Substance: ENFORTUMAB VEDOTIN-EJFV
     Route: 042
     Dates: start: 20241107
  6. PADCEV [Suspect]
     Active Substance: ENFORTUMAB VEDOTIN-EJFV
     Route: 042
     Dates: start: 20241210
  7. PADCEV [Suspect]
     Active Substance: ENFORTUMAB VEDOTIN-EJFV
     Route: 042
     Dates: start: 20241217
  8. PADCEV [Suspect]
     Active Substance: ENFORTUMAB VEDOTIN-EJFV
     Route: 042
     Dates: start: 20241230
  9. PADCEV [Suspect]
     Active Substance: ENFORTUMAB VEDOTIN-EJFV
     Route: 042
     Dates: start: 20250121
  10. PADCEV [Suspect]
     Active Substance: ENFORTUMAB VEDOTIN-EJFV
     Route: 042
     Dates: start: 20250131
  11. PADCEV [Suspect]
     Active Substance: ENFORTUMAB VEDOTIN-EJFV
     Route: 042
     Dates: start: 20250226
  12. PADCEV [Suspect]
     Active Substance: ENFORTUMAB VEDOTIN-EJFV
     Route: 042
     Dates: start: 20250304
  13. PEMBROLIZUMAB [Concomitant]
     Active Substance: PEMBROLIZUMAB
     Indication: Product used for unknown indication
     Route: 065

REACTIONS (23)
  - Abdominal pain [Not Recovered/Not Resolved]
  - Kidney infection [Recovered/Resolved]
  - Anaemia [Recovered/Resolved]
  - Neuropathy peripheral [Not Recovered/Not Resolved]
  - Blood glucose increased [Unknown]
  - Swelling [Not Recovered/Not Resolved]
  - Dyspnoea [Unknown]
  - Hypertension [Unknown]
  - Cystitis [Recovered/Resolved]
  - Haemoglobin decreased [Not Recovered/Not Resolved]
  - Vascular device occlusion [Unknown]
  - Fatigue [Not Recovered/Not Resolved]
  - Dizziness [Unknown]
  - Pruritus [Not Recovered/Not Resolved]
  - Dry mouth [Unknown]
  - Nausea [Recovered/Resolved]
  - Dry eye [Recovering/Resolving]
  - Oedema peripheral [Unknown]
  - Peripheral swelling [Not Recovered/Not Resolved]
  - Blood pressure systolic increased [Recovered/Resolved]
  - Vomiting [Recovered/Resolved]
  - Heart rate increased [Unknown]
  - Blood pressure increased [Recovered/Resolved]

NARRATIVE: CASE EVENT DATE: 20240101
